FAERS Safety Report 7793558-6 (Version None)
Quarter: 2011Q4

REPORT INFORMATION
  Report Type: 
  Country: None (occurrence: None)
  Receive Date: 20111003
  Receipt Date: 20110926
  Transmission Date: 20120403
  Serious: Yes (Death)
  Sender: FDA-Public Use
  Company Number: PHHY2011GB35587

PATIENT
  Age: 54 Year
  Sex: Male

DRUGS (6)
  1. CYTARABINE [Suspect]
     Dosage: 30 MG, UNK
     Route: 037
  2. IDARUBICIN HCL [Suspect]
     Dosage: UNK UKN, UNK
  3. AMPHOTERICIN B [Concomitant]
     Dosage: UNK UKN, UNK
  4. HYDROCORTISONE [Suspect]
     Dosage: 12.5 MG, UNK
     Route: 037
  5. METHOTREXATE [Suspect]
     Dosage: 12.5 MG, UNK
     Route: 037
  6. ETOPOSIDE [Suspect]
     Dosage: UNK UKN, UNK

REACTIONS (4)
  - NEUTROPENIA [None]
  - PYREXIA [None]
  - SEPTIC SHOCK [None]
  - FUNGAL INFECTION [None]
